FAERS Safety Report 8315093-9 (Version None)
Quarter: 2012Q2

REPORT INFORMATION
  Report Type: 
  Country: None (occurrence: None)
  Receive Date: 20120426
  Receipt Date: 20120420
  Transmission Date: 20120825
  Serious: Yes (Hospitalization, Other)
  Sender: FDA-Public Use
  Company Number: US-BAYER-201033771NA

PATIENT
  Age: 28 Year
  Sex: Female
  Weight: 47.619 kg

DRUGS (10)
  1. YAZ [Suspect]
     Indication: ORAL CONTRACEPTION
     Dosage: UNK UNK, UNK
     Route: 048
     Dates: start: 20051101, end: 20081015
  2. IBUPROFEN (ADVIL) [Concomitant]
  3. YASMIN [Suspect]
     Indication: MENSTRUAL CYCLE MANAGEMENT
     Route: 048
     Dates: start: 20051101, end: 20081015
  4. DROSPIRENONE AND ETHINYL ESTRADIOL [Suspect]
     Indication: ORAL CONTRACEPTION
  5. NAPROXEN (ALEVE) [Concomitant]
  6. DROSPIRENONE AND ETHINYL ESTRADIOL [Suspect]
     Indication: MENSTRUAL CYCLE MANAGEMENT
     Route: 048
     Dates: start: 20051101, end: 20081015
  7. PROZAC [Concomitant]
  8. MOTRIN [Concomitant]
     Indication: PAIN
  9. YASMIN [Suspect]
     Indication: CONTRACEPTION
  10. ZOLOFT [Concomitant]

REACTIONS (4)
  - CHEST PAIN [None]
  - PULMONARY EMBOLISM [None]
  - PULMONARY INFARCTION [None]
  - DYSPNOEA [None]
